FAERS Safety Report 22121477 (Version 2)
Quarter: 2023Q1

REPORT INFORMATION
  Report Type: Report from Study
  Country: TR (occurrence: None)
  Receive Date: 20230321
  Receipt Date: 20230327
  Transmission Date: 20230417
  Serious: Yes (Hospitalization)
  Sender: FDA-Public Use
  Company Number: TR-Eisai Medical Research-EC-2023-136665

PATIENT
  Age: 75 Year
  Sex: Male
  Weight: 54.4 kg

DRUGS (8)
  1. LENVATINIB [Suspect]
     Active Substance: LENVATINIB
     Indication: Hepatocellular carcinoma
     Route: 048
     Dates: start: 20220706, end: 20230117
  2. LENVATINIB [Suspect]
     Active Substance: LENVATINIB
     Dosage: STARTING AT 12 MG FLUCTUATED DOSAGE
     Route: 048
     Dates: start: 20230118
  3. PEMBROLIZUMAB [Suspect]
     Active Substance: PEMBROLIZUMAB
     Indication: Hepatocellular carcinoma
     Dosage: VIBOSTOLIMAB 200 MG (+) PEMBROLIZUMAB 200 MG
     Route: 042
     Dates: start: 20220706, end: 20230117
  4. VIBOSTOLIMAB [Suspect]
     Active Substance: VIBOSTOLIMAB
     Dosage: VIBOSTOLIMAB 200 MG (+) PEMBROLIZUMAB 200 MG
     Route: 042
     Dates: start: 20230222
  5. EUTHYROX [Concomitant]
     Active Substance: LEVOTHYROXINE SODIUM
     Dates: start: 20221207
  6. FOSINOPRIL SODIUM\HYDROCHLOROTHIAZIDE [Concomitant]
     Active Substance: FOSINOPRIL SODIUM\HYDROCHLOROTHIAZIDE
     Dates: start: 20140806
  7. METFORMIN HYDROCHLORIDE [Concomitant]
     Active Substance: METFORMIN HYDROCHLORIDE
     Dates: start: 20140806
  8. CHLORHEXIDINE HYDROCHLORIDE;LIDOCAINE HYDROCHLORIDE [Concomitant]
     Dates: start: 20221219, end: 20230105

REACTIONS (1)
  - Adrenal insufficiency [Recovering/Resolving]

NARRATIVE: CASE EVENT DATE: 20230117
